FAERS Safety Report 8847124 (Version 1)
Quarter: 2012Q4

REPORT INFORMATION
  Report Type: 
  Country: DK (occurrence: DK)
  Receive Date: 20121018
  Receipt Date: 20121018
  Transmission Date: 20130627
  Serious: Yes (Other)
  Sender: FDA-Public Use
  Company Number: DK-JNJFOC-20121006363

PATIENT
  Sex: Male

DRUGS (2)
  1. STERLARA [Suspect]
     Indication: PSORIASIS
     Route: 058
     Dates: start: 20110325
  2. STERLARA [Suspect]
     Indication: PSORIASIS
     Route: 058

REACTIONS (2)
  - Tooth fracture [Unknown]
  - Tooth disorder [Unknown]
